FAERS Safety Report 8512889-5 (Version None)
Quarter: 2012Q3

REPORT INFORMATION
  Report Type: 
  Country: None (occurrence: None)
  Receive Date: 20120716
  Receipt Date: 20120704
  Transmission Date: 20120928
  Serious: Yes (Other)
  Sender: FDA-Public Use
  Company Number: PHHY2012CA044960

PATIENT
  Sex: Female

DRUGS (11)
  1. NEXIUM [Concomitant]
  2. VESICARE [Concomitant]
  3. ESCITALOPRAM [Interacting]
  4. WATER PILLS [Concomitant]
  5. BACLOFEN [Concomitant]
  6. EXTRA STRENGTH TYLENOL [Concomitant]
  7. GILENYA [Interacting]
     Indication: RELAPSING-REMITTING MULTIPLE SCLEROSIS
     Dosage: 0.5 MG, QD
     Route: 048
     Dates: start: 20120515, end: 20120612
  8. CLONAZEPAM [Concomitant]
  9. DICLOFENAC SODIUM [Suspect]
     Dosage: UNK UKN, PRN
  10. AMITRIPTYLINE HCL [Concomitant]
  11. GABAPENTIN [Concomitant]

REACTIONS (15)
  - LYMPHOCYTE COUNT DECREASED [None]
  - NEUTROPENIA [None]
  - FATIGUE [None]
  - MUSCULAR WEAKNESS [None]
  - NAUSEA [None]
  - WHITE BLOOD CELL COUNT DECREASED [None]
  - ABDOMINAL DISCOMFORT [None]
  - EYE SWELLING [None]
  - MULTIPLE SCLEROSIS RELAPSE [None]
  - HEADACHE [None]
  - PYREXIA [None]
  - DYSPNOEA [None]
  - VISION BLURRED [None]
  - DRUG INTERACTION [None]
  - ABNORMAL SENSATION IN EYE [None]
